FAERS Safety Report 4922596-3 (Version None)
Quarter: 2006Q1

REPORT INFORMATION
  Report Type: 
  Country: None (occurrence: None)
  Receive Date: 20060224
  Receipt Date: 20060213
  Transmission Date: 20060701
  Serious: Yes (Hospitalization)
  Sender: FDA-Public Use
  Company Number: GB-GLAXOSMITHKLINE-B0411196A

PATIENT
  Age: 32 Year
  Sex: Female

DRUGS (2)
  1. LAMICTAL [Suspect]
     Dosage: 50MG TWICE PER DAY
     Route: 048
  2. NIFEDIPINE [Suspect]
     Dates: end: 20060205

REACTIONS (2)
  - GRAND MAL CONVULSION [None]
  - NORMAL DELIVERY [None]
